FAERS Safety Report 7135223-4 (Version None)
Quarter: 2010Q4

REPORT INFORMATION
  Report Type: 
  Country: None (occurrence: None)
  Receive Date: 20101203
  Receipt Date: 20101122
  Transmission Date: 20110411
  Serious: No
  Sender: FDA-Public Use
  Company Number: US-PFIZER INC-US-WYE-H18009610

PATIENT
  Sex: Female
  Weight: 133.8 kg

DRUGS (1)
  1. EFFEXOR XR [Suspect]
     Dosage: 225 MG, 1X/DAY
     Route: 048
     Dates: end: 20100901

REACTIONS (2)
  - DRUG WITHDRAWAL SYNDROME [None]
  - NERVOUSNESS [None]
